FAERS Safety Report 4366078-9 (Version None)
Quarter: 2004Q2

REPORT INFORMATION
  Report Type: 
  Country: None (occurrence: None)
  Receive Date: 20040527
  Receipt Date: 20040514
  Transmission Date: 20050107
  Serious: Yes (Other)
  Sender: FDA-Public Use
  Company Number: PHEH2004US05338

PATIENT
  Age: 18 Year
  Sex: Female

DRUGS (11)
  1. ZELNORM [Suspect]
     Indication: IRRITABLE BOWEL SYNDROME
     Dosage: 6 MG, BID
     Route: 048
     Dates: start: 20040504
  2. PROZAC [Concomitant]
  3. ZYPREXA [Concomitant]
  4. ATIVAN [Concomitant]
  5. ASACOL [Concomitant]
  6. PREVACID [Concomitant]
  7. ALLEGRA-D [Concomitant]
  8. PROVENTIL [Concomitant]
  9. ATROVENT [Concomitant]
  10. ADVAIR DISKUS 100/50 [Concomitant]
  11. FLOVENT [Concomitant]

REACTIONS (8)
  - ASTHMA [None]
  - BODY TEMPERATURE INCREASED [None]
  - CHEST DISCOMFORT [None]
  - COUGH [None]
  - FLUSHING [None]
  - HYPERHIDROSIS [None]
  - NAUSEA [None]
  - SINUSITIS [None]
